FAERS Safety Report 7312643-6 (Version None)
Quarter: 2011Q1

REPORT INFORMATION
  Report Type: 
  Country: None (occurrence: None)
  Receive Date: 20110214
  Receipt Date: 20101220
  Transmission Date: 20110831
  Serious: Yes (Hospitalization)
  Sender: FDA-Public Use
  Company Number: 2010SP003504

PATIENT
  Age: 18 Year
  Sex: Male
  Weight: 71.8 kg

DRUGS (3)
  1. PREV MEDS [Concomitant]
  2. COGENTIN [Concomitant]
  3. LATUDA [Suspect]
     Indication: SCHIZOPHRENIA
     Dosage: 80 MG;QD;ORAL
     Route: 048
     Dates: start: 20100831, end: 20101218

REACTIONS (6)
  - HOMICIDAL IDEATION [None]
  - SCHIZOPHRENIA [None]
  - AGGRESSION [None]
  - SUICIDAL IDEATION [None]
  - AGITATION [None]
  - HALLUCINATION, AUDITORY [None]
